FAERS Safety Report 9812359 (Version 2)
Quarter: 2014Q1

REPORT INFORMATION
  Report Type: Spontaneous
  Country: IT (occurrence: IT)
  Receive Date: 20140113
  Receipt Date: 20140312
  Transmission Date: 20141002
  Serious: Yes (Hospitalization)
  Sender: FDA-Public Use
  Company Number: IT-ROCHE-1331443

PATIENT
  Age: 2 Year
  Sex: Female

DRUGS (1)
  1. RIVOTRIL [Suspect]
     Indication: PRODUCT USED FOR UNKNOWN INDICATION
     Route: 065
     Dates: start: 20131201, end: 20131201

REACTIONS (3)
  - Depressed level of consciousness [Recovering/Resolving]
  - Accidental exposure to product by child [Unknown]
  - Medication error [Unknown]
